FAERS Safety Report 5691823-X (Version None)
Quarter: 2008Q2

REPORT INFORMATION
  Report Type: 
  Country: None (occurrence: None)
  Receive Date: 20080402
  Receipt Date: 20080321
  Transmission Date: 20081010
  Serious: Yes (Hospitalization, Other)
  Sender: FDA-Public Use
  Company Number: US-AMGEN-QUU270864

PATIENT
  Sex: Male

DRUGS (1)
  1. ENBREL [Suspect]
     Indication: RHEUMATOID ARTHRITIS
     Route: 058

REACTIONS (8)
  - GASTROINTESTINAL CANDIDIASIS [None]
  - GASTROSTOMY TUBE INSERTION [None]
  - INTESTINAL OBSTRUCTION [None]
  - LUNG INFECTION [None]
  - MYCOBACTERIUM AVIUM COMPLEX INFECTION [None]
  - OESOPHAGEAL CANDIDIASIS [None]
  - PNEUMONIA [None]
  - POSTOPERATIVE WOUND INFECTION [None]
